FAERS Safety Report 9605919 (Version 3)
Quarter: 2013Q4

REPORT INFORMATION
  Report Type: Spontaneous
  Country: US (occurrence: US)
  Receive Date: 20131008
  Receipt Date: 20131122
  Transmission Date: 20140711
  Serious: Yes (Death, Other)
  Sender: FDA-Public Use
  Company Number: CHPA2013US015130

PATIENT
  Age: 55 Year
  Sex: Female

DRUGS (1)
  1. EX-LAX MAX STR LAX PILLS SENNA [Suspect]
     Indication: CONSTIPATION
     Dosage: 1 DF, Q12H
     Route: 048

REACTIONS (6)
  - Organ failure [Fatal]
  - Anorectal discomfort [Not Recovered/Not Resolved]
  - Skin disorder [Unknown]
  - Lethargy [Unknown]
  - Underdose [Unknown]
  - Incorrect drug administration duration [Unknown]
